FAERS Safety Report 18599795 (Version 1)
Quarter: 2020Q4

REPORT INFORMATION
  Report Type: Spontaneous
  Country: US (occurrence: US)
  Receive Date: 20201210
  Receipt Date: 20201210
  Transmission Date: 20210114
  Serious: No
  Sender: FDA-Public Use
  Company Number: US-PFIZER INC-2020330938

PATIENT
  Age: 83 Year
  Sex: Male

DRUGS (1)
  1. INLYTA [Suspect]
     Active Substance: AXITINIB
     Dosage: 5 MG, ONCE DAILY (TAKE 1 TAB Q (EVERY) 24 WITH A FULL GLASS OF WATER)

REACTIONS (3)
  - Neoplasm progression [Unknown]
  - Blood count abnormal [Unknown]
  - Off label use [Unknown]
